FAERS Safety Report 8475073-X (Version None)
Quarter: 2012Q2

REPORT INFORMATION
  Report Type: 
  Country: None (occurrence: None)
  Receive Date: 20120628
  Receipt Date: 20120619
  Transmission Date: 20120825
  Serious: Yes (Other)
  Sender: FDA-Public Use
  Company Number: CA-JNJFOC-20120307712

PATIENT
  Sex: Female
  Weight: 56 kg

DRUGS (14)
  1. REMICADE [Suspect]
     Route: 042
     Dates: start: 20010130
  2. IRON [Concomitant]
     Route: 065
  3. REMICADE [Suspect]
     Route: 042
     Dates: start: 20120619
  4. ADVAIR DISKUS 100/50 [Concomitant]
     Route: 065
  5. REMICADE [Suspect]
     Route: 042
     Dates: start: 20080501
  6. LASIX [Concomitant]
     Route: 065
  7. ANTIBIOTICS [Concomitant]
     Dosage: AS NEEDED
     Route: 065
  8. REMICADE [Suspect]
     Indication: CROHN'S DISEASE
     Route: 042
     Dates: start: 20100602
  9. PLAVIX [Concomitant]
     Route: 065
  10. POTASSIUM ACETATE [Concomitant]
     Route: 065
  11. SYNTHROID [Concomitant]
     Route: 065
  12. VENTOLIN [Concomitant]
     Dosage: AS NEEDED
     Route: 065
  13. DILTIAZEM HYDROCHOLORIDE [Concomitant]
     Route: 065
  14. AMIODARONE HYDROCHLORIDE [Concomitant]
     Route: 065

REACTIONS (7)
  - INCREASED UPPER AIRWAY SECRETION [None]
  - FATIGUE [None]
  - DYSPNOEA [None]
  - CHEST DISCOMFORT [None]
  - BRONCHIECTASIS [None]
  - BLOOD PRESSURE DECREASED [None]
  - BREATH SOUNDS ABNORMAL [None]
